FAERS Safety Report 19869362 (Version 1)
Quarter: 2021Q3

REPORT INFORMATION
  Report Type: Spontaneous
  Country: GB (occurrence: GB)
  Receive Date: 20210922
  Receipt Date: 20210922
  Transmission Date: 20211014
  Serious: Yes (Other)
  Sender: FDA-Public Use
  Company Number: GB-TEVA-2021-GB-1954453

PATIENT
  Age: 84 Year
  Sex: Male

DRUGS (3)
  1. CO?CARELDOPA [Suspect]
     Active Substance: CARBIDOPA\LEVODOPA
     Dosage: 1 DOSAGE FORM (ONE TABLET AT NIGHT)
     Route: 048
  2. SINEMET [Suspect]
     Active Substance: CARBIDOPA\LEVODOPA
     Dosage: 4 DOSAGE FORMS DAILY; 1 DOSAGE FORM, QID (ONE TABLET AT 9 AM, 12 PM, 3 PM AND 6 PM)
     Route: 048
  3. NACOM [Suspect]
     Active Substance: CARBIDOPA\LEVODOPA
     Dosage: 4 DOSAGE FORMS DAILY; 1 DOSAGE FORM, QID(ONE TABLET AT 9 AM, 12 PM, 3 PM AND 6 PM),PKGID=09R0551
     Route: 048

REACTIONS (7)
  - Drug ineffective [Unknown]
  - Abnormal behaviour [Unknown]
  - Aortic aneurysm [Unknown]
  - Abdominal discomfort [Not Recovered/Not Resolved]
  - Accident at home [Unknown]
  - Fatigue [Not Recovered/Not Resolved]
  - Gastric ulcer [Unknown]
